FAERS Safety Report 7207976-8 (Version None)
Quarter: 2010Q4

REPORT INFORMATION
  Report Type: 
  Country: None (occurrence: None)
  Receive Date: 20101230
  Receipt Date: 20101230
  Transmission Date: 20110411
  Serious: Yes (Life-Threatening)
  Sender: FDA-Public Use
  Company Number: None

PATIENT
  Sex: Female
  Weight: 108.8633 kg

DRUGS (2)
  1. PROPOXYPHEN APAP 100 - 650 MG TB [Suspect]
     Indication: BACK PAIN
     Dosage: 100 - 650 MG 1 - 3X DAY
     Dates: start: 20060101, end: 20101001
  2. PROPOXYPHEN APAP 100 - 650 MG TB [Suspect]
     Indication: NECK PAIN
     Dosage: 100 - 650 MG 1 - 3X DAY
     Dates: start: 20060101, end: 20101001

REACTIONS (4)
  - GAIT DISTURBANCE [None]
  - PAIN [None]
  - POOR PERIPHERAL CIRCULATION [None]
  - VASODILATATION [None]
